FAERS Safety Report 4687728-3 (Version None)
Quarter: 2005Q2

REPORT INFORMATION
  Report Type: 
  Country: None (occurrence: None)
  Receive Date: 20050610
  Receipt Date: 20050204
  Transmission Date: 20051028
  Serious: Yes (Hospitalization)
  Sender: FDA-Public Use
  Company Number: US-MERCK-0502USA00660

PATIENT
  Age: 64 Year
  Sex: Male
  Weight: 91 kg

DRUGS (13)
  1. VIOXX [Suspect]
     Indication: ARTHRITIS
     Route: 048
     Dates: start: 20000323, end: 20020401
  2. VIOXX [Suspect]
     Route: 048
     Dates: start: 20020401, end: 20020401
  3. VIOXX [Suspect]
     Route: 048
     Dates: start: 20020401, end: 20040930
  4. ZIAC [Concomitant]
     Indication: BLOOD PRESSURE
     Route: 065
  5. PRILOSEC [Concomitant]
     Indication: GASTROOESOPHAGEAL REFLUX DISEASE
     Route: 048
  6. CATAPRES [Concomitant]
     Route: 065
  7. SIMETHICONE [Concomitant]
     Indication: FLATULENCE
     Route: 065
  8. NORVASC [Concomitant]
     Indication: BLOOD PRESSURE
     Route: 065
     Dates: start: 19990908
  9. ASPIRIN [Concomitant]
     Route: 065
     Dates: start: 19990908, end: 20020602
  10. TYLENOL (CAPLET) [Concomitant]
     Route: 065
     Dates: start: 19990908
  11. [THERAPY UNSPECIFIED] [Concomitant]
     Route: 065
     Dates: start: 19990908
  12. IBUPROFEN [Concomitant]
     Route: 065
     Dates: start: 19900101, end: 20000301
  13. XANAX [Concomitant]
     Route: 065
     Dates: start: 20020401

REACTIONS (24)
  - ACTINIC KERATOSIS [None]
  - ANGINA PECTORIS [None]
  - ANXIETY [None]
  - BENIGN PROSTATIC HYPERPLASIA [None]
  - BLOOD CREATINE PHOSPHOKINASE INCREASED [None]
  - CARDIAC FAILURE CONGESTIVE [None]
  - CAROTID ARTERY STENOSIS [None]
  - CARPAL TUNNEL SYNDROME [None]
  - CELLULITIS [None]
  - CEREBROVASCULAR ACCIDENT [None]
  - FATIGUE [None]
  - HEADACHE [None]
  - HYPERTENSION [None]
  - JOINT SPRAIN [None]
  - MEMORY IMPAIRMENT [None]
  - MENISCUS LESION [None]
  - MYOCARDIAL INFARCTION [None]
  - NERVE INJURY [None]
  - OTITIS EXTERNA [None]
  - PAIN [None]
  - RENAL ARTERY STENOSIS [None]
  - SHOULDER PAIN [None]
  - STOMACH DISCOMFORT [None]
  - TINNITUS [None]
